FAERS Safety Report 5854584-7 (Version None)
Quarter: 2008Q3

REPORT INFORMATION
  Report Type: 
  Country: None (occurrence: None)
  Receive Date: 20080822
  Receipt Date: 20080811
  Transmission Date: 20090109
  Serious: Yes (Hospitalization)
  Sender: FDA-Public Use
  Company Number: FR-PFIZER INC-2008067287

PATIENT
  Sex: Male

DRUGS (3)
  1. LYRICA [Suspect]
     Indication: EPILEPSY
     Route: 048
     Dates: start: 20080222, end: 20080620
  2. RIVOTRIL [Suspect]
     Indication: EPILEPSY
     Route: 048
  3. TEGRETOL [Concomitant]

REACTIONS (1)
  - DRUG WITHDRAWAL SYNDROME [None]
